FAERS Safety Report 17992150 (Version 1)
Quarter: 2020Q3

REPORT INFORMATION
  Report Type: Spontaneous
  Country: US (occurrence: US)
  Receive Date: 20200707
  Receipt Date: 20200707
  Transmission Date: 20201103
  Serious: Yes (Other)
  Sender: FDA-Public Use
  Company Number: US-LEXICON PHARMACEUTICALS, INC-20-1606-00521

PATIENT
  Age: 83 Year
  Sex: Female

DRUGS (1)
  1. XERMELO [Suspect]
     Active Substance: TELOTRISTAT ETHYL
     Indication: CARCINOID SYNDROME
     Dates: start: 20200402

REACTIONS (6)
  - Decreased appetite [Unknown]
  - Radiotherapy [Unknown]
  - Malaise [Unknown]
  - Asthenia [Unknown]
  - Blood count abnormal [Unknown]
  - Diarrhoea [Unknown]
